FAERS Safety Report 8967872 (Version 5)
Quarter: 2013Q4

REPORT INFORMATION
  Report Type: Spontaneous
  Country: GB (occurrence: GB)
  Receive Date: 20121217
  Receipt Date: 20131014
  Transmission Date: 20140711
  Serious: Yes (Hospitalization)
  Sender: FDA-Public Use
  Company Number: GB-PFIZER INC-GBWYE705516APR04

PATIENT
  Age: 79 Year
  Sex: Male

DRUGS (12)
  1. IBUPROFEN [Suspect]
     Dosage: 400.0 MG, 3X/DAY
     Route: 065
     Dates: start: 200101, end: 20040311
  2. ATORVASTATIN [Suspect]
     Indication: HYPERCHOLESTEROLAEMIA
     Dosage: 40.0 MG, 1X/DAY
     Route: 048
     Dates: start: 200311, end: 20040311
  3. AVANDIA [Suspect]
     Indication: TYPE 2 DIABETES MELLITUS
     Dosage: 8.0 MG, 1X/DAY
     Route: 048
     Dates: start: 200210, end: 20040316
  4. METFORMIN [Concomitant]
     Dosage: 850 MG, 3X/DAY
     Route: 065
     Dates: start: 20040311
  5. AMOXICILLIN [Concomitant]
     Dosage: 250 MG, 3X/DAY
     Route: 065
     Dates: start: 20031120, end: 20031125
  6. CO-CODAMOL [Concomitant]
     Dosage: DOSE 8/500 AS NEEDED
     Route: 065
  7. DOXYCYCLINE [Concomitant]
     Dosage: 100 MG, 1X/DAY
     Route: 065
     Dates: start: 20031128, end: 20031205
  8. GLICLAZIDE [Concomitant]
     Dosage: 80 MG, 2X/DAY
     Route: 065
  9. LEVOTHYROXINE SODIUM [Concomitant]
     Dosage: 175 UG, 1X/DAY
     Route: 065
  10. OXYBUTYNIN [Concomitant]
     Dosage: 10 MG, 1X/DAY
     Route: 065
     Dates: start: 200311
  11. RAMIPRIL [Concomitant]
     Dosage: 2.5 MG, 1X/DAY
     Route: 065
  12. SILDENAFIL [Concomitant]
     Dosage: 50 MG, AS NEEDED
     Route: 065

REACTIONS (7)
  - Cholelithiasis [Recovering/Resolving]
  - Liver function test abnormal [Recovering/Resolving]
  - Jaundice [Recovering/Resolving]
  - Alanine aminotransferase increased [Unknown]
  - Aspartate aminotransferase increased [Unknown]
  - Blood alkaline phosphatase increased [Unknown]
  - Blood bilirubin increased [Unknown]
